FAERS Safety Report 6541808-6 (Version None)
Quarter: 2010Q1

REPORT INFORMATION
  Report Type: 
  Country: None (occurrence: None)
  Receive Date: 20100119
  Receipt Date: 20100107
  Transmission Date: 20100710
  Serious: Yes (Life-Threatening, Disabling, Other)
  Sender: FDA-Public Use
  Company Number: PHHY2009JP37325

PATIENT
  Sex: Male
  Weight: 62 kg

DRUGS (22)
  1. ZOMETA [Suspect]
     Dosage: 4 MG SINGLE DOSE
     Route: 042
     Dates: start: 20060911, end: 20060911
  2. ZOMETA [Suspect]
     Dosage: 4 MG SINGLE DOSE
     Route: 042
     Dates: start: 20060901, end: 20060901
  3. ZOMETA [Suspect]
     Dosage: 4 MG EVERY THREE WEEKS
     Route: 042
     Dates: start: 20061201, end: 20090801
  4. VOLTAREN-XR [Concomitant]
     Dosage: 75 MG
     Route: 048
  5. TAXOTERE [Concomitant]
     Dosage: 100 MG
     Route: 042
     Dates: start: 20070731
  6. MAINTATE [Concomitant]
     Dosage: 5 MG, UNK
     Route: 048
  7. ACINON [Concomitant]
     Dosage: 150 MG,
     Route: 048
  8. ACINON [Concomitant]
     Dosage: 300 MG
     Route: 048
  9. URALYT [Concomitant]
     Dosage: 6 DF
     Route: 048
  10. GASCON [Concomitant]
     Dosage: 40 MG, UNK
     Route: 048
  11. DEPAS [Concomitant]
     Dosage: 0.4 MG, UNK
     Route: 048
  12. ETHINYLOESTRADIOL [Concomitant]
     Dosage: 0.5 MG, UNK
     Route: 048
  13. ETHINYLOESTRADIOL [Concomitant]
     Dosage: 3 MG
     Route: 048
  14. MAGLAX [Concomitant]
     Dosage: 250 MG, UNK
     Route: 048
  15. URIEF [Concomitant]
     Dosage: 4 MG, UNK
     Route: 048
  16. LASIX [Concomitant]
     Dosage: 20 MG, UNK
     Route: 048
  17. RINDERON [Concomitant]
     Dosage: 0.5 MG, UNK
  18. RINDERON [Concomitant]
     Dosage: 1 MG
     Route: 048
  19. LUPRAC [Concomitant]
     Dosage: 4 MG, UNK
     Route: 048
  20. OPSO DAINIPPON [Concomitant]
  21. OXYCONTIN [Concomitant]
     Route: 048
  22. DRUG THERAPY NOS [Concomitant]

REACTIONS (17)
  - ARTHRALGIA [None]
  - ASPARTATE AMINOTRANSFERASE INCREASED [None]
  - BLOOD ALKALINE PHOSPHATASE INCREASED [None]
  - BLOOD CHOLESTEROL INCREASED [None]
  - BLOOD GLUCOSE INCREASED [None]
  - BLOOD SODIUM DECREASED [None]
  - CHILLS [None]
  - GAMMA-GLUTAMYLTRANSFERASE INCREASED [None]
  - HAEMATOCRIT DECREASED [None]
  - HAEMOGLOBIN DECREASED [None]
  - ORAL PAIN [None]
  - OSTEONECROSIS [None]
  - PLATELET COUNT INCREASED [None]
  - POLLAKIURIA [None]
  - PYREXIA [None]
  - RED BLOOD CELL COUNT DECREASED [None]
  - WHITE BLOOD CELL COUNT INCREASED [None]
